FAERS Safety Report 18985625 (Version 1)
Quarter: 2021Q1

REPORT INFORMATION
  Report Type: Spontaneous
  Country: US (occurrence: US)
  Receive Date: 20210226
  Receipt Date: 20210226
  Transmission Date: 20210420
  Serious: Yes (Death)
  Sender: FDA-Public Use
  Company Number: None

PATIENT
  Age: 31 Year
  Sex: Female
  Weight: 60.75 kg

DRUGS (3)
  1. ZENZENDI [Concomitant]
  2. XANAX [Suspect]
     Active Substance: ALPRAZOLAM
  3. VYVANSE [Suspect]
     Active Substance: LISDEXAMFETAMINE DIMESYLATE
     Indication: BULIMIA NERVOSA
     Dates: start: 20200102, end: 20210126

REACTIONS (2)
  - Toxicity to various agents [None]
  - Withdrawal syndrome [None]

NARRATIVE: CASE EVENT DATE: 20200801
